FAERS Safety Report 15789466 (Version 1)
Quarter: 2019Q1

REPORT INFORMATION
  Report Type: Spontaneous
  Country: BR (occurrence: BR)
  Receive Date: 20190104
  Receipt Date: 20190104
  Transmission Date: 20190417
  Serious: Yes (Other)
  Sender: FDA-Public Use
  Company Number: BR-JNJFOC-20181233995

PATIENT
  Sex: Female

DRUGS (3)
  1. DUROGESIC D TRANS [Suspect]
     Active Substance: FENTANYL
     Indication: PAIN
     Route: 065
  2. MORPHINE [Suspect]
     Active Substance: MORPHINE
     Indication: PAIN
     Route: 050
  3. FENTANYL CITRATE. [Suspect]
     Active Substance: FENTANYL CITRATE
     Indication: PAIN
     Route: 050

REACTIONS (3)
  - Headache [Unknown]
  - Respiratory failure [Unknown]
  - Wrong technique in product usage process [Unknown]
